FAERS Safety Report 21202036 (Version 1)
Quarter: 2022Q3

REPORT INFORMATION
  Report Type: Spontaneous
  Country: US (occurrence: US)
  Receive Date: 20220811
  Receipt Date: 20220811
  Transmission Date: 20221027
  Serious: No
  Sender: FDA-Public Use
  Company Number: US-AURINIA PHARMACEUTICALS INC.-AUR-001618

PATIENT
  Sex: Female

DRUGS (1)
  1. LUPKYNIS [Suspect]
     Active Substance: VOCLOSPORIN
     Indication: Lupus nephritis
     Dosage: 23.7 MILLIGRAM, BID
     Route: 048
     Dates: start: 20220405, end: 20220425

REACTIONS (8)
  - Nausea [Unknown]
  - Vomiting [Unknown]
  - Neck pain [Unknown]
  - Asthenia [Unknown]
  - Dyspnoea [Unknown]
  - Renal pain [Unknown]
  - Cough [Unknown]
  - Urinary tract infection [Unknown]
